FAERS Safety Report 9300096 (Version 2)
Quarter: 2013Q1

REPORT INFORMATION
  Report Type: Spontaneous
  Country: US (occurrence: None)
  Receive Date: 20121107
  Receipt Date: 20130122
  Transmission Date: 20140127
  Serious: Yes (Death, Hospitalization)
  Sender: FDA-Public Use
  Company Number: 2012-1020

PATIENT
  Age: 72 Year
  Sex: Female

DRUGS (6)
  1. KYPROLIS [Suspect]
     Indication: PLASMA CELL MYELOMA
     Route: 042
     Dates: start: 20120925, end: 20121024
  2. INSULIN [Concomitant]
  3. NORCO [Concomitant]
  4. MORPHINE [Concomitant]
  5. DIABETIC MEDICATION [Concomitant]
  6. DEXAMETHASONE [Concomitant]

REACTIONS (4)
  - Blood glucose increased [None]
  - Treatment noncompliance [None]
  - Drug administration error [None]
  - Plasma cell myeloma [None]
